FAERS Safety Report 4514384-7 (Version None)
Quarter: 2004Q4

REPORT INFORMATION
  Report Type: 
  Country: None (occurrence: None)
  Receive Date: 20041124
  Receipt Date: 20041116
  Transmission Date: 20050328
  Serious: Yes (Life-Threatening, Hospitalization)
  Sender: FDA-Public Use
  Company Number: 2004-10-1440

PATIENT
  Age: 62 Year
  Sex: Male

DRUGS (4)
  1. TEMODAL [Suspect]
     Indication: GLIOBLASTOMA MULTIFORME
     Dosage: SEE IMAGE
     Route: 048
     Dates: start: 20040803, end: 20040807
  2. TEMODAL [Suspect]
     Indication: GLIOBLASTOMA MULTIFORME
     Dosage: SEE IMAGE
     Route: 048
     Dates: start: 20040803, end: 20040926
  3. TEMODAL [Suspect]
     Indication: GLIOBLASTOMA MULTIFORME
     Dosage: SEE IMAGE
     Route: 048
     Dates: start: 20040922, end: 20040926
  4. ACEPRIL [Concomitant]

REACTIONS (4)
  - CONDITION AGGRAVATED [None]
  - NEPHROGENIC DIABETES INSIPIDUS [None]
  - RENAL IMPAIRMENT [None]
  - THROMBOCYTOPENIA [None]
